FAERS Safety Report 12864068 (Version 8)
Quarter: 2017Q1

REPORT INFORMATION
  Report Type: Report from Study
  Country: US (occurrence: US)
  Receive Date: 20161019
  Receipt Date: 20170324
  Transmission Date: 20170428
  Serious: Yes (Other)
  Sender: FDA-Public Use
  Company Number: US-009507513-1610USA001303

PATIENT
  Age: 80 Year
  Sex: Male
  Weight: 82.09 kg

DRUGS (2)
  1. PEMBROLIZUMAB. [Suspect]
     Active Substance: PEMBROLIZUMAB
     Indication: MALIGNANT MELANOMA STAGE IV
     Dosage: UNK, Q3W
     Route: 042
     Dates: start: 20160929
  2. PREDNISONE. [Suspect]
     Active Substance: PREDNISONE
     Indication: ARTHRITIS
     Dosage: 5 MG, UNK
     Dates: start: 201611, end: 201702

REACTIONS (10)
  - Neoplasm [Unknown]
  - Cough [Unknown]
  - Dyspnoea exertional [Not Recovered/Not Resolved]
  - Weight increased [Unknown]
  - Retching [Recovered/Resolved]
  - Rash [Recovered/Resolved]
  - Influenza like illness [Recovered/Resolved]
  - Arthralgia [Not Recovered/Not Resolved]
  - Cataract operation [Unknown]
  - Diarrhoea [Recovered/Resolved]

NARRATIVE: CASE EVENT DATE: 2016
